FAERS Safety Report 9770582 (Version 1)
Quarter: 2013Q4

REPORT INFORMATION
  Report Type: Spontaneous
  Country: GB (occurrence: GB)
  Receive Date: 20131218
  Receipt Date: 20131218
  Transmission Date: 20140711
  Serious: Yes (Hospitalization, Other)
  Sender: FDA-Public Use
  Company Number: GB-ROXANE LABORATORIES, INC.-2013-RO-01963RO

PATIENT
  Age: 86 Year
  Sex: Female
  Weight: 61 kg

DRUGS (5)
  1. RAMIPRIL [Suspect]
     Dosage: 5 MG
  2. CO-CODAMOL [Suspect]
     Indication: PAIN
  3. BENDROFLUMETHIAZIDE [Suspect]
     Dosage: 2.5 MG
  4. SIMVASTATIN [Suspect]
     Dosage: 40 MG
  5. ASPIRIN [Suspect]
     Dosage: 75 MG

REACTIONS (6)
  - Confusional state [Recovered/Resolved]
  - Constipation [Unknown]
  - Renal failure acute [Recovered/Resolved]
  - Toxicity to various agents [Recovered/Resolved]
  - Fall [Recovered/Resolved]
  - Urinary incontinence [Unknown]
